FAERS Safety Report 5332193-6 (Version None)
Quarter: 2007Q2

REPORT INFORMATION
  Report Type: 
  Country: None (occurrence: None)
  Receive Date: 20070306
  Receipt Date: 20060921
  Transmission Date: 20071010
  Serious: Yes (Other)
  Sender: FDA-Public Use
  Company Number: A03200605907

PATIENT
  Age: 62 Year
  Sex: Male

DRUGS (4)
  1. PLAVIX [Suspect]
     Indication: CORONARY ARTERIAL STENT INSERTION
     Dosage: 75 MG QD - ORAL
     Route: 048
     Dates: start: 20020101
  2. ISOSORBIDE [Concomitant]
  3. ACE INHIBITOR [Concomitant]
  4. BETA BLOCKER [Concomitant]

REACTIONS (1)
  - CORONARY ARTERY OCCLUSION [None]
